FAERS Safety Report 9714203 (Version 2)
Quarter: 2015Q3

REPORT INFORMATION
  Report Type: Spontaneous
  Country: US (occurrence: US)
  Receive Date: 20131126
  Receipt Date: 20150803
  Transmission Date: 20151125
  Serious: Yes (Hospitalization)
  Sender: FDA-Public Use
  Company Number: US-GILEAD-2008-0019331

PATIENT
  Age: 71 Year
  Sex: Female
  Weight: 63.5 kg

DRUGS (16)
  1. LETAIRIS [Suspect]
     Active Substance: AMBRISENTAN
     Indication: PULMONARY ARTERIAL HYPERTENSION
     Route: 048
     Dates: start: 20070922
  2. SYNTHROID [Concomitant]
     Active Substance: LEVOTHYROXINE SODIUM
  3. FOLIC ACID. [Concomitant]
     Active Substance: FOLIC ACID
  4. PREVACID [Concomitant]
     Active Substance: LANSOPRAZOLE
  5. CALCITRIOL. [Concomitant]
     Active Substance: CALCITRIOL
  6. CALCIUM [Concomitant]
     Active Substance: CALCIUM
  7. REVATIO [Concomitant]
     Active Substance: SILDENAFIL CITRATE
  8. SPIRONOLACTONE. [Concomitant]
     Active Substance: SPIRONOLACTONE
  9. REGLAN [Concomitant]
     Active Substance: METOCLOPRAMIDE HYDROCHLORIDE
  10. CLOTRIMAZOLE. [Concomitant]
     Active Substance: CLOTRIMAZOLE
     Route: 061
  11. COUMADIN [Concomitant]
     Active Substance: WARFARIN SODIUM
  12. FLONASE [Concomitant]
     Active Substance: FLUTICASONE PROPIONATE
  13. LOTENSIN [Concomitant]
     Active Substance: BENAZEPRIL HYDROCHLORIDE
  14. ACTONEL [Concomitant]
     Active Substance: RISEDRONATE SODIUM
  15. LASIX [Concomitant]
     Active Substance: FUROSEMIDE
  16. ADALAT CC [Concomitant]
     Active Substance: NIFEDIPINE

REACTIONS (1)
  - Fluid retention [None]
